FAERS Safety Report 14133873 (Version 1)
Quarter: 2017Q4

REPORT INFORMATION
  Report Type: Spontaneous
  Country: US (occurrence: US)
  Receive Date: 20171027
  Receipt Date: 20171027
  Transmission Date: 20180321
  Serious: No
  Sender: FDA-Public Use
  Company Number: US-PFIZER INC-2017462628

PATIENT
  Age: 49 Year
  Sex: Female
  Weight: 81 kg

DRUGS (1)
  1. CEFTRIAXONE SODIUM. [Suspect]
     Active Substance: CEFTRIAXONE SODIUM
     Indication: BRAIN ABSCESS
     Dosage: 2 G, 2X/DAY
     Route: 042
     Dates: start: 201706, end: 20171018

REACTIONS (1)
  - Drug ineffective [Unknown]
